FAERS Safety Report 15169878 (Version 5)
Quarter: 2022Q2

REPORT INFORMATION
  Report Type: Other
  Country: CA (occurrence: CA)
  Receive Date: 20180720
  Receipt Date: 20220530
  Transmission Date: 20220721
  Serious: Yes (Other)
  Sender: FDA-Public Use
  Company Number: CA-APOTEX-2018AP017243

PATIENT
  Age: 51 Year
  Sex: Female

DRUGS (31)
  1. RAMIPRIL [Suspect]
     Active Substance: RAMIPRIL
     Indication: Cardiac failure congestive
     Dosage: UNK
     Route: 065
  2. CYCLOPHOSPHAMIDE [Suspect]
     Active Substance: CYCLOPHOSPHAMIDE
     Indication: Progesterone receptor assay negative
     Dosage: CYCLICAL
     Route: 065
  3. CYCLOPHOSPHAMIDE [Suspect]
     Active Substance: CYCLOPHOSPHAMIDE
     Indication: Oestrogen receptor assay negative
     Dosage: UNK
     Route: 042
  4. CYCLOPHOSPHAMIDE [Suspect]
     Active Substance: CYCLOPHOSPHAMIDE
     Indication: HER2 positive breast cancer
  5. CYCLOPHOSPHAMIDE [Suspect]
     Active Substance: CYCLOPHOSPHAMIDE
     Indication: Breast cancer stage III
  6. DOCETAXEL [Suspect]
     Active Substance: DOCETAXEL
     Indication: Progesterone receptor assay negative
     Dosage: UNK CYCLICAL
     Route: 065
  7. DOCETAXEL [Suspect]
     Active Substance: DOCETAXEL
     Indication: Oestrogen receptor assay negative
     Dosage: UNK
     Route: 042
  8. DOCETAXEL [Suspect]
     Active Substance: DOCETAXEL
     Indication: HER2 positive breast cancer
  9. DOCETAXEL [Suspect]
     Active Substance: DOCETAXEL
     Indication: Breast cancer stage III
  10. EPIRUBICIN HYDROCHLORIDE [Suspect]
     Active Substance: EPIRUBICIN HYDROCHLORIDE
     Indication: Progesterone receptor assay negative
     Dosage: 100 MG/M2, CYCLICAL
     Route: 065
  11. EPIRUBICIN HYDROCHLORIDE [Suspect]
     Active Substance: EPIRUBICIN HYDROCHLORIDE
     Indication: Oestrogen receptor assay negative
     Dosage: 100 MILLIGRAM/SQ. METER
     Route: 042
  12. EPIRUBICIN HYDROCHLORIDE [Suspect]
     Active Substance: EPIRUBICIN HYDROCHLORIDE
     Indication: HER2 positive breast cancer
     Dosage: UNK
     Route: 065
  13. EPIRUBICIN HYDROCHLORIDE [Suspect]
     Active Substance: EPIRUBICIN HYDROCHLORIDE
     Indication: Breast cancer stage III
     Dosage: 100 MILLIGRAM/SQ. METER
     Route: 065
  14. FLUOROURACIL [Suspect]
     Active Substance: FLUOROURACIL
     Indication: Progesterone receptor assay negative
     Dosage: CYCLICAL
     Route: 065
  15. FLUOROURACIL [Suspect]
     Active Substance: FLUOROURACIL
     Indication: Oestrogen receptor assay negative
  16. FLUOROURACIL [Suspect]
     Active Substance: FLUOROURACIL
     Indication: HER2 positive breast cancer
  17. FLUOROURACIL [Suspect]
     Active Substance: FLUOROURACIL
     Indication: Breast cancer stage III
  18. TRASTUZUMAB [Suspect]
     Active Substance: TRASTUZUMAB
     Indication: Progesterone receptor assay negative
     Dosage: CYCLICAL
     Route: 065
  19. TRASTUZUMAB [Suspect]
     Active Substance: TRASTUZUMAB
     Indication: Oestrogen receptor assay negative
  20. TRASTUZUMAB [Suspect]
     Active Substance: TRASTUZUMAB
     Indication: HER2 positive breast cancer
  21. TRASTUZUMAB [Suspect]
     Active Substance: TRASTUZUMAB
     Indication: Breast cancer stage III
  22. CYCLOPHOSPHAMIDE [Suspect]
     Active Substance: CYCLOPHOSPHAMIDE
     Indication: HER2 positive breast cancer
     Dosage: UNK
     Route: 042
  23. CYCLOPHOSPHAMIDE [Suspect]
     Active Substance: CYCLOPHOSPHAMIDE
     Indication: Breast cancer stage III
  24. CYCLOPHOSPHAMIDE [Suspect]
     Active Substance: CYCLOPHOSPHAMIDE
     Indication: Progesterone receptor assay negative
  25. CYCLOPHOSPHAMIDE [Suspect]
     Active Substance: CYCLOPHOSPHAMIDE
     Indication: Oestrogen receptor assay negative
  26. ALTACE [Suspect]
     Active Substance: RAMIPRIL
     Indication: Cardiac failure congestive
     Dosage: UNK
     Route: 065
  27. BISOPROLOL [Concomitant]
     Active Substance: BISOPROLOL
     Indication: Cardiac failure congestive
     Dosage: UNK
     Route: 065
  28. EFUDEX [Suspect]
     Active Substance: FLUOROURACIL
     Indication: Progesterone receptor assay negative
     Dosage: UNK
     Route: 065
  29. EFUDEX [Suspect]
     Active Substance: FLUOROURACIL
     Indication: Oestrogen receptor assay negative
  30. EFUDEX [Suspect]
     Active Substance: FLUOROURACIL
     Indication: HER2 positive breast cancer
  31. EFUDEX [Suspect]
     Active Substance: FLUOROURACIL
     Indication: Breast cancer stage III

REACTIONS (4)
  - Cardiac failure congestive [Recovering/Resolving]
  - Drug intolerance [Recovering/Resolving]
  - Troponin I increased [Recovering/Resolving]
  - Ejection fraction decreased [Recovering/Resolving]
